FAERS Safety Report 19406968 (Version 6)
Quarter: 2021Q4

REPORT INFORMATION
  Report Type: Spontaneous
  Country: US (occurrence: US)
  Receive Date: 20210611
  Receipt Date: 20211201
  Transmission Date: 20220303
  Serious: Yes (Other)
  Sender: FDA-Public Use
  Company Number: US-GLAXOSMITHKLINE-US2021AMR124840

PATIENT
  Sex: Female

DRUGS (1)
  1. ZEJULA [Suspect]
     Active Substance: NIRAPARIB
     Indication: Product used for unknown indication
     Dosage: 300 MG, QD
     Route: 048
     Dates: end: 20210830

REACTIONS (7)
  - Malignant neoplasm progression [Unknown]
  - Asthenia [Unknown]
  - Eye discharge [Unknown]
  - Vision blurred [Unknown]
  - Abdominal discomfort [Unknown]
  - Anorectal discomfort [Unknown]
  - Drug ineffective [Unknown]
